FAERS Safety Report 8675617 (Version 2)
Quarter: 2012Q4

REPORT INFORMATION
  Report Type: 
  Country: US (occurrence: US)
  Receive Date: 20120720
  Receipt Date: 20121003
  Transmission Date: 20130627
  Serious: Yes (Hospitalization, Congenital Anomaly)
  Sender: FDA-Public Use
  Company Number: US-GLAXOSMITHKLINE-A0985276A

PATIENT
  Age: 0 Year
  Sex: Male
  Weight: 3.7 kg

DRUGS (1)
  1. PAXIL [Suspect]
     Indication: DEPRESSION
     Dosage: 20MG Per day
     Route: 064

REACTIONS (4)
  - Scaphocephaly [Unknown]
  - Craniosynostosis [Unknown]
  - Renal aplasia [Unknown]
  - Foetal exposure during pregnancy [Unknown]
